FAERS Safety Report 16626913 (Version 1)
Quarter: 2019Q3

REPORT INFORMATION
  Report Type: Spontaneous
  Country: US (occurrence: US)
  Receive Date: 20190724
  Receipt Date: 20190724
  Transmission Date: 20191004
  Serious: No
  Sender: FDA-Public Use
  Company Number: US-SA-2019SA195853

PATIENT
  Age: 81 Year
  Sex: Male

DRUGS (2)
  1. ZANTAC 150 (RANITIDINE HYDROCHLORIDE) [Suspect]
     Active Substance: RANITIDINE HYDROCHLORIDE
     Indication: NAUSEA
     Dosage: 150 MG (SO HE TOOK 4 TABLETS IN 24 HOURS)
     Route: 065
     Dates: start: 20190712, end: 20190712
  2. ZANTAC 150 (RANITIDINE HYDROCHLORIDE) [Suspect]
     Active Substance: RANITIDINE HYDROCHLORIDE
     Dosage: 2 DF, QD (1 IN THE MORNING AND 1 AT NIGHT)
     Route: 065

REACTIONS (5)
  - Asthenia [Unknown]
  - Feeling abnormal [Unknown]
  - Hypertension [Unknown]
  - Dyspnoea [Unknown]
  - Overdose [Unknown]

NARRATIVE: CASE EVENT DATE: 20190712
